FAERS Safety Report 5061457-9 (Version None)
Quarter: 2006Q3

REPORT INFORMATION
  Report Type: 
  Country: None (occurrence: None)
  Receive Date: 20060719
  Receipt Date: 20060719
  Transmission Date: 20061208
  Serious: Yes (Hospitalization)
  Sender: FDA-Public Use
  Company Number: None

PATIENT
  Age: 85 Year
  Sex: Male
  Weight: 90.2658 kg

DRUGS (6)
  1. BACTRIM [Suspect]
     Indication: URINARY TRACT INFECTION
     Dosage: 800/160 BID
     Dates: start: 20060613, end: 20060621
  2. FINASTERIDE [Concomitant]
  3. SULFAMETHOXAZOLE AND TRIMETHOPRIM DOUBLE STRENGTH [Concomitant]
  4. . [Concomitant]
  5. . [Concomitant]
  6. . [Concomitant]

REACTIONS (2)
  - ABDOMINAL PAIN [None]
  - BLOOD CREATININE INCREASED [None]
